FAERS Safety Report 19070653 (Version 2)
Quarter: 2021Q2

REPORT INFORMATION
  Report Type: Report from Study
  Country: US (occurrence: US)
  Receive Date: 20210330
  Receipt Date: 20210428
  Transmission Date: 20210717
  Serious: No
  Sender: FDA-Public Use
  Company Number: NVSC2021US066288

PATIENT
  Sex: Male

DRUGS (1)
  1. ENTRESTO [Suspect]
     Active Substance: SACUBITRIL\VALSARTAN
     Indication: PRODUCT USED FOR UNKNOWN INDICATION
     Dosage: UNK UNK, BID
     Route: 048
     Dates: start: 202103

REACTIONS (7)
  - Fluid retention [Recovering/Resolving]
  - Blood pressure fluctuation [Recovering/Resolving]
  - Sleep disorder [Unknown]
  - Dyspnoea [Unknown]
  - Dehydration [Unknown]
  - Irritable bowel syndrome [Unknown]
  - Asthenia [Unknown]
